FAERS Safety Report 13896261 (Version 2)
Quarter: 2017Q3

REPORT INFORMATION
  Report Type: Spontaneous
  Country: US (occurrence: US)
  Receive Date: 20170823
  Receipt Date: 20170824
  Transmission Date: 20171127
  Serious: Yes (Death)
  Sender: FDA-Public Use
  Company Number: US-ACCORD-057370

PATIENT
  Age: 97 Year
  Sex: Female

DRUGS (1)
  1. QUETIAPINE. [Suspect]
     Active Substance: QUETIAPINE
     Indication: INSOMNIA
     Dates: start: 20160805

REACTIONS (3)
  - Cardiac death [Fatal]
  - Off label use [Unknown]
  - Arrhythmia [Fatal]

NARRATIVE: CASE EVENT DATE: 20160805
